FAERS Safety Report 7949338-1 (Version None)
Quarter: 2011Q4

REPORT INFORMATION
  Report Type: 
  Country: None (occurrence: None)
  Receive Date: 20111130
  Receipt Date: 20111122
  Transmission Date: 20120403
  Serious: Yes (Death, Hospitalization)
  Sender: FDA-Public Use
  Company Number: US-CELGENEUS-163-C5013-11112355

PATIENT
  Sex: Male
  Weight: 74.9 kg

DRUGS (21)
  1. TRIAMTERENE AND HYDROCHLOROTHIAZIDE [Concomitant]
     Dosage: 25/37.5
     Route: 048
  2. BENZONATATE [Concomitant]
     Indication: PAIN
     Dosage: 100 MILLIGRAM
     Route: 048
  3. SODIUM CHLORIDE [Concomitant]
     Dosage: 1000 MILLILITER
     Route: 041
     Dates: start: 20111114
  4. OXYCODONE HCL [Concomitant]
     Indication: PAIN
     Dosage: 5-10 MG
     Route: 048
  5. AZITHROMYCIN [Concomitant]
     Dosage: 250 MILLIGRAM
     Route: 048
  6. LENALIDOMIDE [Suspect]
     Indication: MANTLE CELL LYMPHOMA
     Dosage: 10 MILLIGRAM
     Route: 048
     Dates: start: 20111010
  7. ASPIRIN [Concomitant]
     Dosage: 81 MILLIGRAM
     Route: 048
  8. AMLODIPINE [Concomitant]
     Dosage: 10 MILLIGRAM
     Route: 048
  9. PIROXICAM [Concomitant]
     Dosage: 20 MILLIGRAM
     Route: 048
  10. ACYCLOVIR [Concomitant]
     Indication: PAIN
     Dosage: 200 MILLIGRAM
     Route: 048
  11. MULTI-VITAMINS [Concomitant]
     Dosage: 1 TABLET
     Route: 048
  12. ALBUTEROL SULFATE AND IPRATROPIUM BROMIDE [Concomitant]
     Dosage: 2 PUFF
     Route: 055
  13. TESSALON [Concomitant]
     Dosage: 100 MILLIGRAM
     Route: 048
  14. LENALIDOMIDE [Suspect]
     Dosage: 10 MILLIGRAM
     Route: 048
     Dates: start: 20111109, end: 20111114
  15. ZOLPIDEM [Concomitant]
     Dosage: 5 MILLIGRAM
     Route: 048
  16. VANCOMYCIN [Concomitant]
     Dosage: 1 GRAM
     Route: 040
     Dates: start: 20111114, end: 20111114
  17. NEXIUM [Concomitant]
     Indication: PAIN
     Dosage: 40 MILLIGRAM
     Route: 048
  18. MEROPENEM [Concomitant]
     Dosage: 500 MILLIGRAM
     Route: 040
     Dates: start: 20111114, end: 20111114
  19. FINASTERIDE [Concomitant]
     Dosage: 5 MILLIGRAM
     Route: 048
  20. ATIVAN [Concomitant]
     Dosage: 0.5 - 1 MG
     Route: 048
  21. ALLOPURINOL [Concomitant]
     Dosage: 300 MILLIGRAM
     Route: 048

REACTIONS (2)
  - DYSPNOEA [None]
  - DEATH [None]
